FAERS Safety Report 24857384 (Version 1)
Quarter: 2025Q1

REPORT INFORMATION
  Report Type: Other
  Country: GB (occurrence: GB)
  Receive Date: 20250117
  Receipt Date: 20250117
  Transmission Date: 20250408
  Serious: Yes (Hospitalization, Other)
  Sender: GLENMARK
  Company Number: None

PATIENT

DRUGS (1)
  1. MONTELUKAST SODIUM [Suspect]
     Active Substance: MONTELUKAST SODIUM
     Indication: Product used for unknown indication
     Route: 065

REACTIONS (8)
  - Emotional distress [Unknown]
  - Confusional state [Unknown]
  - Hallucination, visual [Unknown]
  - Depressed mood [Unknown]
  - Anger [Unknown]
  - Micturition urgency [Unknown]
  - Crying [Unknown]
  - Fear [Unknown]
